FAERS Safety Report 11024986 (Version 1)
Quarter: 2015Q2

REPORT INFORMATION
  Report Type: Report from Study
  Country: US (occurrence: US)
  Receive Date: 20150414
  Receipt Date: 20150414
  Transmission Date: 20150821
  Serious: Yes (Hospitalization)
  Sender: FDA-Public Use
  Company Number: US-GILEAD-2015-0148064

PATIENT
  Age: 65 Year
  Sex: Female

DRUGS (14)
  1. FERROUS GLUCONATE [Concomitant]
     Active Substance: FERROUS GLUCONATE
  2. DOXYCYCLINE. [Concomitant]
     Active Substance: DOXYCYCLINE
  3. METOLAZONE. [Concomitant]
     Active Substance: METOLAZONE
  4. DIOVAN [Concomitant]
     Active Substance: VALSARTAN
  5. SILDENAFIL. [Concomitant]
     Active Substance: SILDENAFIL
  6. FLONASE                            /00908302/ [Concomitant]
  7. VELETRI [Concomitant]
     Active Substance: EPOPROSTENOL
  8. INDAPAMIDE. [Concomitant]
     Active Substance: INDAPAMIDE
  9. VERAMYST [Concomitant]
     Active Substance: FLUTICASONE FUROATE
  10. LASIX [Concomitant]
     Active Substance: FUROSEMIDE
  11. ALDACTONE [Concomitant]
     Active Substance: SPIRONOLACTONE
  12. CLARITIN [Concomitant]
     Active Substance: LORATADINE
  13. ZYRTEC [Concomitant]
     Active Substance: CETIRIZINE HYDROCHLORIDE
  14. AMBRISENTAN [Suspect]
     Active Substance: AMBRISENTAN
     Indication: PULMONARY ARTERIAL HYPERTENSION
     Dosage: 10 MG, QD
     Route: 065
     Dates: start: 20100216

REACTIONS (2)
  - Pyrexia [Recovered/Resolved]
  - Infection [Recovered/Resolved]

NARRATIVE: CASE EVENT DATE: 20150311
